FAERS Safety Report 6976692-X (Version None)
Quarter: 2010Q3

REPORT INFORMATION
  Report Type: 
  Country: None (occurrence: None)
  Receive Date: 20100910
  Receipt Date: 20100901
  Transmission Date: 20110219
  Serious: Yes (Other)
  Sender: FDA-Public Use
  Company Number: CA-ASTRAZENECA-2010SE39075

PATIENT
  Age: 522 Month
  Sex: Female
  Weight: 77.1 kg

DRUGS (17)
  1. SEROQUEL XR [Suspect]
     Indication: DEPRESSION
     Route: 048
     Dates: start: 20100618
  2. SEROQUEL XR [Suspect]
     Route: 048
     Dates: start: 20100721
  3. ZOMIG [Concomitant]
     Indication: MIGRAINE
     Route: 048
     Dates: start: 20060501
  4. TRIDURAL [Concomitant]
     Indication: PAIN
     Route: 048
     Dates: start: 20090801
  5. TRAMADOL HCL [Concomitant]
     Indication: PAIN
     Dosage: 325-375, 1 TAB EVERY 4-6 HOURS AS NEEDED
     Route: 048
     Dates: start: 20061101
  6. ZOPICLONE [Concomitant]
     Indication: SLEEP DISORDER
     Route: 048
     Dates: start: 20100501
  7. LIPIDIL [Concomitant]
     Indication: HYPERCHOLESTEROLAEMIA
     Route: 048
     Dates: start: 20090301
  8. AMERGE [Concomitant]
     Indication: MIGRAINE
     Route: 048
     Dates: start: 20080801
  9. VESICARE [Concomitant]
     Indication: HYPERTONIC BLADDER
     Route: 048
     Dates: start: 20081001
  10. PANTOPRAZOLE [Concomitant]
     Route: 048
     Dates: start: 20080201
  11. CYMBALTA [Concomitant]
     Dates: start: 20090201
  12. GRAVOL TAB [Concomitant]
     Indication: NAUSEA
     Dosage: 1 TABLET TID AS REQUIRED
     Dates: start: 20030101
  13. WELLBUTRIN [Concomitant]
     Dates: start: 20080201
  14. BROMAZEPAM [Concomitant]
     Dosage: 6 MG BID AS REQUIRED
     Dates: start: 19991201
  15. INDERAL [Concomitant]
     Indication: MIGRAINE PROPHYLAXIS
     Dates: start: 20081101
  16. INDERAL [Concomitant]
     Indication: BLOOD PRESSURE ABNORMAL
     Dates: start: 20081101
  17. DIOVAN [Concomitant]
     Dates: start: 20091201

REACTIONS (1)
  - INTRAOCULAR PRESSURE INCREASED [None]
